FAERS Safety Report 5469104-9 (Version None)
Quarter: 2007Q3

REPORT INFORMATION
  Report Type: 
  Country: None (occurrence: None)
  Receive Date: 20070820
  Receipt Date: 20070518
  Transmission Date: 20080115
  Serious: No
  Sender: FDA-Public Use
  Company Number: WAES 0705USA03623

PATIENT
  Age: 63 Year
  Sex: Female
  Weight: 79.8331 kg

DRUGS (2)
  1. JANUVIA [Suspect]
     Indication: DIABETES MELLITUS
     Dosage: 100 MG/DAILY/PO
     Route: 048
     Dates: start: 20070205, end: 20070510
  2. HYDROXYCHLOROQUINE SULFATE [Concomitant]

REACTIONS (1)
  - RASH PRURITIC [None]
